FAERS Safety Report 21774150 (Version 3)
Quarter: 2023Q2

REPORT INFORMATION
  Report Type: Report from Study
  Country: CA (occurrence: CA)
  Receive Date: 20221223
  Receipt Date: 20230613
  Transmission Date: 20230722
  Serious: Yes (Other)
  Sender: FDA-Public Use
  Company Number: CA-CELLTRION INC.-2022CA020945

PATIENT

DRUGS (4)
  1. TRUXIMA [Suspect]
     Active Substance: RITUXIMAB-ABBS
     Indication: Vasculitis
     Dosage: INFUSION #2, 1000 MILLIGRAM, FREQUENCY: 3 WEEKS APART
     Route: 042
     Dates: start: 20221122
  2. TRUXIMA [Suspect]
     Active Substance: RITUXIMAB-ABBS
     Dosage: 500 MILLIGRAM, INFUSION #3
     Route: 042
     Dates: start: 20221122
  3. AMLODIPINE [Concomitant]
     Active Substance: AMLODIPINE BESYLATE
     Dosage: DAILY
  4. RAMIPRIL [Concomitant]
     Active Substance: RAMIPRIL
     Dosage: DAILY

REACTIONS (4)
  - Hypertension [Recovering/Resolving]
  - Myalgia [Recovered/Resolved]
  - Fatigue [Recovered/Resolved]
  - Intentional product use issue [Unknown]

NARRATIVE: CASE EVENT DATE: 20221206
